FAERS Safety Report 23755464 (Version 3)
Quarter: 2024Q2

REPORT INFORMATION
  Report Type: Spontaneous
  Country: DE (occurrence: DE)
  Receive Date: 20240418
  Receipt Date: 20240520
  Transmission Date: 20240716
  Serious: Yes (Life-Threatening, Hospitalization, Other)
  Sender: FDA-Public Use
  Company Number: DE-SANDOZ-SDZ2024DE032407

PATIENT
  Age: 8 Week

DRUGS (4)
  1. VERAPAMIL [Suspect]
     Active Substance: VERAPAMIL HYDROCHLORIDE
     Indication: Ventricular tachycardia
     Dosage: 0.3 MILLIGRAM/KILOGRAM, QH, 0,3 MG/KG/HOUR CONT
     Route: 042
  2. VERAPAMIL [Suspect]
     Active Substance: VERAPAMIL HYDROCHLORIDE
     Dosage: 0.1 MILLIGRAM/KILOGRAM
     Route: 042
  3. VERAPAMIL [Suspect]
     Active Substance: VERAPAMIL HYDROCHLORIDE
     Dosage: 6 MILLIGRAM/KILOGRAM, QD
     Route: 042
  4. ADENOSINE [Suspect]
     Active Substance: ADENOSINE
     Indication: Ventricular tachycardia
     Dosage: UNK
     Route: 065

REACTIONS (2)
  - Circulatory collapse [Unknown]
  - Drug ineffective [Unknown]
